FAERS Safety Report 9982814 (Version 1)
Quarter: 2014Q1

REPORT INFORMATION
  Report Type: Report from Study
  Country: US (occurrence: US)
  Receive Date: 20140307
  Receipt Date: 20140307
  Transmission Date: 20141002
  Serious: No
  Sender: FDA-Public Use
  Company Number: US-ABBVIE-13P-163-1177011-00

PATIENT
  Age: 62 Year
  Sex: Female
  Weight: 77.18 kg

DRUGS (6)
  1. HUMIRA [Suspect]
     Indication: RHEUMATOID ARTHRITIS
     Dates: start: 2008, end: 2011
  2. HUMIRA [Suspect]
     Dates: start: 20130101, end: 201311
  3. SULINDAC [Concomitant]
     Indication: RHEUMATOID ARTHRITIS
  4. PREDNISONE [Concomitant]
     Indication: RHEUMATOID ARTHRITIS
  5. PRILOSEC [Concomitant]
     Indication: GASTROOESOPHAGEAL REFLUX DISEASE
  6. ENBREL [Concomitant]
     Indication: RHEUMATOID ARTHRITIS
     Dates: start: 2011, end: 201212

REACTIONS (3)
  - Pain [Recovering/Resolving]
  - Arthralgia [Unknown]
  - Bone pain [Not Recovered/Not Resolved]
